FAERS Safety Report 15617124 (Version 5)
Quarter: 2018Q4

REPORT INFORMATION
  Report Type: Report from Study
  Country: None (occurrence: GB)
  Receive Date: 20181114
  Receipt Date: 20181204
  Transmission Date: 20190205
  Serious: Yes (Hospitalization, Other)
  Sender: FDA-Public Use
  Company Number: GB-ABBVIE-18S-167-2548160-00

PATIENT
  Age: 41 Year
  Sex: Male

DRUGS (3)
  1. DUODOPA [Suspect]
     Active Substance: CARBIDOPA\LEVODOPA
     Indication: PARKINSON^S DISEASE
     Dosage: 100ML CASSETTE DAILY
     Route: 050
  2. DUODOPA [Suspect]
     Active Substance: CARBIDOPA\LEVODOPA
     Dosage: MORNING DOSE 8.2ML, CONTINUOUS RATE 4ML/HR, EXTRA DOSE 1ML
     Route: 050
     Dates: start: 20180905
  3. DUODOPA [Suspect]
     Active Substance: CARBIDOPA\LEVODOPA
     Route: 050
     Dates: start: 20181122

REACTIONS (8)
  - Device dislocation [Recovered/Resolved]
  - Device dislocation [Unknown]
  - Haematemesis [Unknown]
  - Device issue [Unknown]
  - Dyskinesia [Unknown]
  - Stoma site infection [Unknown]
  - Agitation [Unknown]
  - Anxiety [Unknown]

NARRATIVE: CASE EVENT DATE: 201811
